FAERS Safety Report 10003430 (Version 2)
Quarter: 2014Q1

REPORT INFORMATION
  Report Type: Spontaneous
  Country: US (occurrence: US)
  Receive Date: 20140312
  Receipt Date: 20140312
  Transmission Date: 20141002
  Serious: No
  Sender: FDA-Public Use
  Company Number: US-GILEAD-2012-0061944

PATIENT
  Age: 10 Year
  Sex: Male

DRUGS (3)
  1. LETAIRIS [Suspect]
     Indication: PULMONARY HYPERTENSION
     Dosage: 10 MG, UNK
     Route: 048
     Dates: start: 20120723
  2. LETAIRIS [Suspect]
     Indication: HEART DISEASE CONGENITAL
  3. LETAIRIS [Suspect]
     Indication: VENOUS OCCLUSION

REACTIONS (5)
  - Sinusitis [Unknown]
  - Fall [Unknown]
  - Wrist fracture [Unknown]
  - Auricular haematoma [Unknown]
  - Cerumen impaction [Unknown]
